FAERS Safety Report 4780126-3 (Version None)
Quarter: 2005Q3

REPORT INFORMATION
  Report Type: 
  Country: None (occurrence: None)
  Receive Date: 20050927
  Receipt Date: 20050920
  Transmission Date: 20060218
  Serious: Yes (Hospitalization)
  Sender: FDA-Public Use
  Company Number: PHRM2005FR02507

PATIENT
  Age: 65 Year
  Sex: Female

DRUGS (4)
  1. ZOMETA [Suspect]
     Indication: MULTIPLE MYELOMA
     Dosage: 4 MG, QMO
     Route: 042
     Dates: start: 20030310, end: 20050610
  2. AREDIA [Suspect]
     Indication: MULTIPLE MYELOMA
     Dosage: 90 MG, QMO
     Route: 042
     Dates: start: 20020624, end: 20021226
  3. DEXAMETHASONE [Suspect]
     Dates: start: 20020624, end: 20030310
  4. ANTIBIOTICS [Suspect]

REACTIONS (8)
  - ASEPTIC NECROSIS BONE [None]
  - DIPLOPIA [None]
  - FISTULA [None]
  - OSTEITIS [None]
  - OSTEOLYSIS [None]
  - OSTEONECROSIS [None]
  - TOOTH EXTRACTION [None]
  - VITH NERVE PARALYSIS [None]
